FAERS Safety Report 9626945 (Version 3)
Quarter: 2014Q2

REPORT INFORMATION
  Report Type: Spontaneous
  Country: JP (occurrence: JP)
  Receive Date: 20131016
  Receipt Date: 20140430
  Transmission Date: 20141212
  Serious: Yes (Hospitalization)
  Sender: FDA-Public Use
  Company Number: JP-GLAXOSMITHKLINE-A1045274A

PATIENT
  Age: 50 Year
  Sex: Female
  Weight: 54 kg

DRUGS (2)
  1. NICOTINE PATCH [Suspect]
     Indication: EX-TOBACCO USER
     Route: 065
  2. NICOTINELL [Suspect]
     Indication: EX-TOBACCO USER
     Route: 065

REACTIONS (1)
  - Cerebral vasoconstriction [Recovering/Resolving]
